FAERS Safety Report 22289282 (Version 1)
Quarter: 2023Q2

REPORT INFORMATION
  Report Type: Report from Study
  Country: CO (occurrence: CO)
  Receive Date: 20230505
  Receipt Date: 20230505
  Transmission Date: 20230721
  Serious: Yes (Other)
  Sender: FDA-Public Use
  Company Number: CO-002147023-NVSC2022CO194703

PATIENT
  Age: 33 Year
  Sex: Female

DRUGS (2)
  1. ELTROMBOPAG OLAMINE [Suspect]
     Active Substance: ELTROMBOPAG OLAMINE
     Indication: Immune thrombocytopenia
     Dosage: 50 MG, Q24H
     Route: 048
     Dates: start: 202208
  2. FEXOFENADINE [Concomitant]
     Active Substance: FEXOFENADINE HYDROCHLORIDE
     Indication: Product used for unknown indication
     Dosage: 120 MG, Q24H
     Route: 048
     Dates: start: 20230415

REACTIONS (10)
  - Headache [Not Recovered/Not Resolved]
  - Blindness transient [Recovered/Resolved]
  - Sinusitis [Unknown]
  - Head discomfort [Unknown]
  - Blood pressure increased [Unknown]
  - Abdominal pain [Unknown]
  - Discouragement [Recovered/Resolved]
  - Nasal congestion [Recovered/Resolved]
  - Malaise [Recovered/Resolved]
  - Pyrexia [Recovered/Resolved]

NARRATIVE: CASE EVENT DATE: 20230201
